FAERS Safety Report 6847491-4 (Version None)
Quarter: 2010Q3

REPORT INFORMATION
  Report Type: 
  Country: None (occurrence: None)
  Receive Date: 20100716
  Receipt Date: 20100707
  Transmission Date: 20110219
  Serious: Yes (Hospitalization, Disabling, Other)
  Sender: FDA-Public Use
  Company Number: JP-PFIZER INC-2010067878

PATIENT
  Age: 48 Year
  Sex: Female
  Weight: 39 kg

DRUGS (9)
  1. ZOLOFT [Suspect]
     Indication: DEPRESSION
     Dosage: 25 MG PER DAY
     Route: 048
     Dates: start: 20090305
  2. ZOLOFT [Suspect]
     Dosage: 75 MG, 1X/DAY
     Route: 048
     Dates: end: 20100602
  3. VEGETAMIN [Suspect]
     Indication: INSOMNIA
     Dosage: 3 TABLETS A DAY
     Route: 048
     Dates: start: 20080703, end: 20100616
  4. DEPAKENE [Concomitant]
     Indication: AFFECT LABILITY
     Dosage: 200 MG 2X/DAY
     Route: 048
     Dates: start: 20091001
  5. DALMANE [Concomitant]
     Indication: INSOMNIA
     Dosage: UNK
     Route: 048
     Dates: start: 20080703, end: 20100616
  6. BENZALIN [Concomitant]
     Indication: INSOMNIA
     Dosage: UNK
     Route: 048
     Dates: start: 20080821
  7. KAMIKIHITOU [Concomitant]
     Indication: INSOMNIA
     Dosage: UNK
     Route: 048
     Dates: start: 20080918
  8. SEPAZON [Concomitant]
     Indication: ANXIETY
     Dosage: UNK
     Route: 048
     Dates: start: 20080703
  9. ULCERLMIN [Concomitant]
     Indication: GASTRIC ULCER
     Dosage: 1 G, 3X/DAY
     Route: 048
     Dates: start: 20100415

REACTIONS (2)
  - ALTERED STATE OF CONSCIOUSNESS [None]
  - URINARY RETENTION [None]
